FAERS Safety Report 23421208 (Version 3)
Quarter: 2025Q1

REPORT INFORMATION
  Report Type: Report from Study
  Country: CA (occurrence: CA)
  Receive Date: 20240119
  Receipt Date: 20250207
  Transmission Date: 20250409
  Serious: Yes (Other)
  Sender: SANDOZ
  Company Number: CA-002147023-NVSC2022CA205907

PATIENT
  Age: 52 Year
  Sex: Male

DRUGS (1)
  1. HYRIMOZ [Suspect]
     Active Substance: ADALIMUMAB-ADAZ
     Indication: Crohn^s disease
     Dosage: 40 MG, QW (WEEKLY)
     Route: 058
     Dates: start: 20220331

REACTIONS (7)
  - Arteriovenous fistula site haemorrhage [Unknown]
  - SARS-CoV-2 test positive [Unknown]
  - Faeces hard [Unknown]
  - Osteoarthritis [Unknown]
  - Dry eye [Unknown]
  - Diarrhoea [Recovering/Resolving]
  - Off label use [Unknown]

NARRATIVE: CASE EVENT DATE: 20220906
